FAERS Safety Report 25430294 (Version 4)
Quarter: 2025Q3

REPORT INFORMATION
  Report Type: Report from Study
  Country: CA (occurrence: CA)
  Receive Date: 20250612
  Receipt Date: 20250919
  Transmission Date: 20251020
  Serious: Yes (Other)
  Sender: JOHNSON AND JOHNSON
  Company Number: CA-JNJFOC-20250230148

PATIENT
  Age: 72 Year
  Sex: Female

DRUGS (6)
  1. TREMFYA [Suspect]
     Active Substance: GUSELKUMAB
     Indication: Psoriasis
     Route: 058
     Dates: start: 20201117
  2. TREMFYA [Suspect]
     Active Substance: GUSELKUMAB
     Route: 058
     Dates: start: 20201019
  3. ENTOCORT CIR [Concomitant]
     Indication: Product used for unknown indication
     Dosage: PER DAY FOR THE FIRST THREE MONTHS,
     Dates: start: 20250411
  4. ENTOCORT CIR [Concomitant]
     Dosage: TWO PER DAY FOR THE NEXT THREE MONTHS, AND THEN ONE PER DAY INDEFINITELY.
  5. CENTRUM ACTIVE [Concomitant]
     Indication: Product used for unknown indication
  6. VITAMINS NOS [Concomitant]
     Active Substance: VITAMINS
     Indication: Product used for unknown indication

REACTIONS (4)
  - Hepatitis [Not Recovered/Not Resolved]
  - Immune system disorder [Not Recovered/Not Resolved]
  - Psoriasis [Not Recovered/Not Resolved]
  - Therapy interrupted [Unknown]

NARRATIVE: CASE EVENT DATE: 20250601
